FAERS Safety Report 4709034-0 (Version None)
Quarter: 2005Q3

REPORT INFORMATION
  Report Type: 
  Country: None (occurrence: None)
  Receive Date: 20050707
  Receipt Date: 20050621
  Transmission Date: 20060218
  Serious: Yes (Other)
  Sender: FDA-Public Use
  Company Number: 2005092715

PATIENT
  Sex: Male

DRUGS (2)
  1. VIAGRA [Suspect]
     Indication: ERECTILE DYSFUNCTION
     Dosage: (25 MG, AS NECESSARY), ORAL
     Route: 048
     Dates: start: 20000101
  2. STABLON (TIANEPTINE) [Concomitant]

REACTIONS (2)
  - DRUG INEFFECTIVE [None]
  - TESTIS CANCER [None]
